FAERS Safety Report 6823738-5 (Version None)
Quarter: 2010Q3

REPORT INFORMATION
  Report Type: 
  Country: None (occurrence: None)
  Receive Date: 20100708
  Receipt Date: 20060822
  Transmission Date: 20110219
  Serious: No
  Sender: FDA-Public Use
  Company Number: US-PFIZER INC-2006103445

PATIENT
  Sex: Male
  Weight: 80.29 kg

DRUGS (5)
  1. CHANTIX [Suspect]
     Indication: SMOKING CESSATION THERAPY
     Route: 048
     Dates: start: 20060807
  2. ACETYLSALICYLIC ACID [Concomitant]
  3. GLUCOVANCE [Concomitant]
  4. LIPITOR [Concomitant]
  5. LOPRESSOR [Concomitant]

REACTIONS (1)
  - DYSGEUSIA [None]
